FAERS Safety Report 6553766-9 (Version None)
Quarter: 2010Q1

REPORT INFORMATION
  Report Type: 
  Country: None (occurrence: None)
  Receive Date: 20100125
  Receipt Date: 20100125
  Transmission Date: 20100710
  Serious: Yes (Other)
  Sender: FDA-Public Use
  Company Number: None

PATIENT
  Sex: Male
  Weight: 72.5755 kg

DRUGS (3)
  1. TRAZODONE HCL [Suspect]
     Indication: SLEEP DISORDER
     Dosage: 1 TAB BY MOUTH AT BED TIME
     Dates: start: 20091230
  2. TRAZODONE HCL [Suspect]
     Indication: SLEEP DISORDER
     Dosage: 1 TAB BY MOUTH AT BED TIME
     Dates: start: 20091231
  3. TRAZODONE HCL [Suspect]
     Indication: SLEEP DISORDER
     Dosage: 1 TAB BY MOUTH AT BED TIME
     Dates: start: 20100101

REACTIONS (9)
  - BALANCE DISORDER [None]
  - DIZZINESS [None]
  - DYSPNOEA [None]
  - FLUSHING [None]
  - NASAL OEDEMA [None]
  - OEDEMA PERIPHERAL [None]
  - POLLAKIURIA [None]
  - PROSTATIC DISORDER [None]
  - THROMBOSIS [None]
